FAERS Safety Report 8260929-3 (Version None)
Quarter: 2012Q2

REPORT INFORMATION
  Report Type: 
  Country: None (occurrence: None)
  Receive Date: 20120402
  Receipt Date: 20120218
  Transmission Date: 20120825
  Serious: No
  Sender: FDA-Public Use
  Company Number: 2012-00065

PATIENT
  Age: 30 Year
  Sex: Female
  Weight: 52.1637 kg

DRUGS (2)
  1. ZICAM COLD REMEDY ORAL MIST [Suspect]
     Indication: SINUSITIS
     Dosage: SPRAYED ORALLY EVERY 3 HOURS
     Route: 048
     Dates: start: 20120217, end: 20120218
  2. ZICAM COLD REMEDY ORAL MIST [Suspect]
     Indication: NASOPHARYNGITIS
     Dosage: SPRAYED ORALLY EVERY 3 HOURS
     Route: 048
     Dates: start: 20120217, end: 20120218

REACTIONS (1)
  - ANOSMIA [None]
